FAERS Safety Report 6534029-4 (Version None)
Quarter: 2010Q1

REPORT INFORMATION
  Report Type: 
  Country: None (occurrence: None)
  Receive Date: 20100112
  Receipt Date: 20100105
  Transmission Date: 20100710
  Serious: Yes (Other)
  Sender: FDA-Public Use
  Company Number: PT-JNJFOC-20091106460

PATIENT
  Sex: Male
  Weight: 60 kg

DRUGS (5)
  1. REMICADE [Suspect]
     Dosage: 5TH INFUSION
     Route: 042
     Dates: end: 20091123
  2. REMICADE [Suspect]
     Dosage: 5TH INFUSION
     Route: 042
     Dates: end: 20091123
  3. REMICADE [Suspect]
     Indication: COLITIS ULCERATIVE
     Route: 042
     Dates: end: 20091123
  4. CORTICOSTEROIDS [Concomitant]
  5. HYDROCORTISONE [Concomitant]
     Indication: PREMEDICATION

REACTIONS (9)
  - ERYTHEMA [None]
  - FACE OEDEMA [None]
  - FLUSHING [None]
  - HYPERTENSION [None]
  - HYPOACUSIS [None]
  - HYPOTHERMIA [None]
  - INFUSION RELATED REACTION [None]
  - PRURITUS [None]
  - RASH PAPULAR [None]
